FAERS Safety Report 9422199 (Version 1)
Quarter: 2013Q3

REPORT INFORMATION
  Report Type: Spontaneous
  Country: US (occurrence: None)
  Receive Date: 20130725
  Receipt Date: 20130725
  Transmission Date: 20140515
  Serious: Yes (Hospitalization)
  Sender: FDA-Public Use
  Company Number: None

PATIENT
  Age: 81 Year
  Sex: Female
  Weight: 102.7 kg

DRUGS (29)
  1. PRADAXA [Suspect]
     Indication: ATRIAL FIBRILLATION
     Route: 048
  2. ASPIRIN [Suspect]
     Route: 048
  3. ACETAMINOPHEN [Concomitant]
  4. DIGOXIN [Concomitant]
  5. OMEPRAZOLE [Concomitant]
  6. MIRALAX [Concomitant]
  7. TRAMADOL [Concomitant]
  8. INSULIN GLARGINE [Concomitant]
  9. INSULIN ASPART [Concomitant]
  10. LISINOPRIL [Suspect]
  11. ASCORBIC ACID [Suspect]
  12. NEBIVOLOL [Concomitant]
  13. FISH OIL OMEGA-3 [Concomitant]
  14. ATORVASTATIN [Concomitant]
  15. SENNA LAX [Concomitant]
  16. SPIRIVA [Concomitant]
  17. FERROUS SULFATE [Concomitant]
  18. MULTIVITAMIN [Concomitant]
  19. TORSEMIDE [Concomitant]
  20. ADVAIR DISKUS [Concomitant]
  21. VITAMIN D3 [Concomitant]
  22. LEVOTHYROXINE [Concomitant]
  23. AMBIEN [Concomitant]
  24. COMBIVENT [Concomitant]
  25. NORCO-5 [Concomitant]
  26. ONDANSETRON [Concomitant]
  27. BACTRIM DS [Concomitant]
  28. MEDROL DOSEPARK [Concomitant]
  29. DOCUSATE [Concomitant]

REACTIONS (3)
  - Melaena [None]
  - Nausea [None]
  - Gastrointestinal haemorrhage [None]
